FAERS Safety Report 7652488-0 (Version None)
Quarter: 2011Q3

REPORT INFORMATION
  Report Type: 
  Country: None (occurrence: None)
  Receive Date: 20110728
  Receipt Date: 20110712
  Transmission Date: 20111222
  Serious: Yes (Other)
  Sender: FDA-Public Use
  Company Number: AUR-APL-2011-04285

PATIENT
  Age: 55 Year
  Sex: Female
  Weight: 107.4 kg

DRUGS (12)
  1. VENLAFAXINE [Suspect]
     Indication: URTICARIA
  2. HYDROXYZINE [Concomitant]
  3. HUMULIN 70/30 (HUMAN MIXTARD /00806401/) [Concomitant]
  4. XANAX [Concomitant]
  5. COREG [Concomitant]
  6. ASPIRIN [Concomitant]
  7. HYZAAR (HYZAAR /01284801/) [Concomitant]
  8. SIMVASTATIN [Concomitant]
  9. JANUMET (METFORMIN AND SITAGLIPTIN) [Concomitant]
  10. NEURONTIN [Concomitant]
  11. CYMBALTA [Concomitant]
  12. LORTAB (LORTAB) [Concomitant]

REACTIONS (1)
  - DRUG INEFFECTIVE [None]
